FAERS Safety Report 6500343-1 (Version None)
Quarter: 2009Q4

REPORT INFORMATION
  Report Type: 
  Country: None (occurrence: None)
  Receive Date: 20091216
  Receipt Date: 20091119
  Transmission Date: 20100525
  Serious: No
  Sender: FDA-Public Use
  Company Number: DE-ROCHE-674557

PATIENT
  Age: 14 Year
  Sex: Female

DRUGS (1)
  1. TAMIFLU [Suspect]
     Indication: DRUG USE FOR UNKNOWN INDICATION
     Dosage: 9 CAPSULES AT ONCE
     Route: 048
     Dates: start: 20091118, end: 20091118

REACTIONS (4)
  - HEADACHE [None]
  - INAPPROPRIATE AFFECT [None]
  - OVERDOSE [None]
  - PSYCHOTIC DISORDER [None]
